FAERS Safety Report 8064012-1 (Version None)
Quarter: 2012Q1

REPORT INFORMATION
  Report Type: 
  Country: None (occurrence: None)
  Receive Date: 20120123
  Receipt Date: 20120113
  Transmission Date: 20120608
  Serious: Yes (Hospitalization)
  Sender: FDA-Public Use
  Company Number: JP-ABBOTT-11P-087-0882328-00

PATIENT
  Sex: Female
  Weight: 48 kg

DRUGS (11)
  1. CEREKINON [Concomitant]
     Indication: DIARRHOEA
     Dates: start: 20110509
  2. KENALOG [Concomitant]
     Indication: STOMATITIS
     Route: 061
     Dates: start: 20111210
  3. HUMIRA [Suspect]
     Route: 058
     Dates: start: 20100629
  4. HUMIRA [Suspect]
     Indication: COLITIS ULCERATIVE
     Route: 058
     Dates: start: 20100316, end: 20100512
  5. KETOPROFEN [Concomitant]
     Indication: PERIARTHRITIS
     Route: 062
     Dates: start: 20110317
  6. LOPERAMIDE HCL [Concomitant]
     Dates: start: 20111210
  7. LANSOPRAZOLE [Concomitant]
     Indication: GASTROOESOPHAGEAL REFLUX DISEASE
     Route: 048
     Dates: start: 20091216
  8. PENTASA [Concomitant]
     Indication: COLITIS ULCERATIVE
     Route: 048
     Dates: start: 20091216
  9. LOPERAMIDE HCL [Concomitant]
     Indication: DIARRHOEA
     Dates: start: 20110509, end: 20111209
  10. POSTERISAN FORTE [Concomitant]
     Indication: HAEMORRHOIDS
     Route: 061
     Dates: start: 20110317
  11. IMURAN [Concomitant]
     Indication: COLITIS ULCERATIVE
     Route: 048
     Dates: start: 20091015

REACTIONS (1)
  - COLITIS ULCERATIVE [None]
